FAERS Safety Report 4292773-6 (Version None)
Quarter: 2004Q1

REPORT INFORMATION
  Report Type: 
  Country: None (occurrence: None)
  Receive Date: 20040210
  Receipt Date: 20040204
  Transmission Date: 20041129
  Serious: Yes (Hospitalization)
  Sender: FDA-Public Use
  Company Number: 2004GB00239

PATIENT
  Age: 85 Year
  Sex: Male

DRUGS (3)
  1. ZOLADEX [Suspect]
     Indication: PROSTATE CANCER
     Dosage: 3.6 MG MONTH IM
     Route: 030
     Dates: start: 19980101
  2. DIGOXIN [Concomitant]
  3. PARACETAMOL [Concomitant]

REACTIONS (1)
  - BREAST CANCER MALE [None]
